FAERS Safety Report 7030747-2 (Version None)
Quarter: 2010Q4

REPORT INFORMATION
  Report Type: 
  Country: None (occurrence: None)
  Receive Date: 20101001
  Receipt Date: 20100916
  Transmission Date: 20110411
  Serious: Yes (Life-Threatening, Hospitalization)
  Sender: FDA-Public Use
  Company Number: A-NJ2010-39867

PATIENT
  Age: 61 Year
  Sex: Male

DRUGS (3)
  1. TRACLEER [Suspect]
     Indication: PULMONARY ARTERIAL HYPERTENSION
     Dosage: ORAL
     Route: 048
     Dates: start: 20100819
  2. TADALAFIL (TADALAFIL) [Concomitant]
  3. REVATIO [Concomitant]

REACTIONS (3)
  - DIAPHRAGMATIC HERNIA [None]
  - LIVER DISORDER [None]
  - OFF LABEL USE [None]
